FAERS Safety Report 16746639 (Version 3)
Quarter: 2021Q3

REPORT INFORMATION
  Report Type: Spontaneous
  Country: FR (occurrence: FR)
  Receive Date: 20190827
  Receipt Date: 20210816
  Transmission Date: 20211014
  Serious: Yes (Hospitalization)
  Sender: FDA-Public Use
  Company Number: FR-MYLANLABS-2019M1079756

PATIENT
  Age: 50 Year
  Sex: Male
  Weight: 75 kg

DRUGS (3)
  1. COMPLEMENT [Suspect]
     Active Substance: NAPROXEN SODIUM
     Indication: ERECTILE DYSFUNCTION
     Dosage: UNK
     Route: 048
  2. SILDENAFIL. [Suspect]
     Active Substance: SILDENAFIL
     Indication: ERECTILE DYSFUNCTION
     Dosage: UNK
     Route: 048
  3. TADALAFIL. [Suspect]
     Active Substance: TADALAFIL
     Indication: ERECTILE DYSFUNCTION
     Dosage: UNK
     Route: 048
     Dates: start: 20210302

REACTIONS (7)
  - Ischaemic stroke [Recovered/Resolved]
  - Dizziness [Recovered/Resolved]
  - Product counterfeit [Not Recovered/Not Resolved]
  - Hemiparesis [Recovered/Resolved]
  - Hypotension [Recovered/Resolved]
  - Fall [Recovered/Resolved]
  - Facial paralysis [Recovered/Resolved]

NARRATIVE: CASE EVENT DATE: 20190305
